APPROVED DRUG PRODUCT: LACRISERT
Active Ingredient: HYDROXYPROPYL CELLULOSE
Strength: 5MG
Dosage Form/Route: INSERT;OPHTHALMIC
Application: N018771 | Product #001
Applicant: BAUSCH AND LOMB INC
Approved: Approved Prior to Jan 1, 1982 | RLD: Yes | RS: No | Type: DISCN